FAERS Safety Report 24306707 (Version 2)
Quarter: 2024Q3

REPORT INFORMATION
  Report Type: Spontaneous
  Country: CN (occurrence: CN)
  Receive Date: 20240911
  Receipt Date: 20240913
  Transmission Date: 20241016
  Serious: Yes (Hospitalization, Other)
  Sender: PFIZER
  Company Number: CN-PFIZER INC-PV202400118221

PATIENT
  Age: 45 Year
  Sex: Male
  Weight: 55 kg

DRUGS (2)
  1. CYTARABINE [Suspect]
     Active Substance: CYTARABINE
     Indication: Acute myeloid leukaemia
     Dosage: 2 G, 2X/DAY (D1, 3, 5)
     Route: 041
     Dates: start: 20240810, end: 20240814
  2. IDARUBICIN HYDROCHLORIDE [Suspect]
     Active Substance: IDARUBICIN HYDROCHLORIDE
     Indication: Acute myeloid leukaemia
     Dosage: 15 MG, 1X/DAY (D2, 4, 6)
     Route: 041
     Dates: start: 20240811, end: 20240815

REACTIONS (4)
  - Myelosuppression [Recovering/Resolving]
  - Temperature intolerance [Unknown]
  - Chills [Unknown]
  - Pyrexia [Unknown]

NARRATIVE: CASE EVENT DATE: 20240816
